FAERS Safety Report 24939453 (Version 2)
Quarter: 2025Q2

REPORT INFORMATION
  Report Type: Spontaneous
  Country: US (occurrence: None)
  Receive Date: 20250206
  Receipt Date: 20250613
  Transmission Date: 20250716
  Serious: Yes (Death, Hospitalization)
  Sender: MDD OPERATIONS
  Company Number: US-MDD US Operations-MDD202501-000285

PATIENT
  Age: 81 Year
  Sex: Female
  Weight: 49.89 kg

DRUGS (7)
  1. APOKYN [Suspect]
     Active Substance: APOMORPHINE HYDROCHLORIDE
     Indication: Parkinson^s disease
  2. APOKYN [Suspect]
     Active Substance: APOMORPHINE HYDROCHLORIDE
  3. CARBIDOPA\LEVODOPA [Concomitant]
     Active Substance: CARBIDOPA\LEVODOPA
     Dosage: EVERY 3 HOURS
  4. ROPINIROLE [Concomitant]
     Active Substance: ROPINIROLE
     Dosage: NOT PROVIDED
  5. NUPLAZID [Concomitant]
     Active Substance: PIMAVANSERIN TARTRATE
     Dosage: NOT PROVIDED
  6. Entacopone [Concomitant]
     Dosage: NOT PROVIDED
  7. MELOXICAM [Concomitant]
     Active Substance: MELOXICAM
     Indication: Pain

REACTIONS (6)
  - Death [Fatal]
  - Respiratory syncytial virus infection [Unknown]
  - Urinary tract infection [Unknown]
  - Urinary tract infection [Unknown]
  - Drug ineffective [Unknown]
  - Expired product administered [Unknown]

NARRATIVE: CASE EVENT DATE: 20250101
